FAERS Safety Report 7536723-5 (Version None)
Quarter: 2011Q2

REPORT INFORMATION
  Report Type: 
  Country: None (occurrence: None)
  Receive Date: 20110608
  Receipt Date: 20110608
  Transmission Date: 20111010
  Serious: Yes (Other)
  Sender: FDA-Public Use
  Company Number: None

PATIENT
  Age: 66 Year
  Sex: Female

DRUGS (1)
  1. ALLI [Suspect]
     Indication: WEIGHT LOSS DIET
     Dosage: 1 3 TIMES A DAY PO
     Route: 048
     Dates: start: 20110514, end: 20110526

REACTIONS (1)
  - HAEMATOCHEZIA [None]
